FAERS Safety Report 22960097 (Version 2)
Quarter: 2023Q4

REPORT INFORMATION
  Report Type: Spontaneous
  Country: US (occurrence: US)
  Receive Date: 20230920
  Receipt Date: 20231214
  Transmission Date: 20240110
  Serious: No
  Sender: FDA-Public Use
  Company Number: US-REATA PHARMACEUTICALS INC.-2023USRTAOMA000289

PATIENT

DRUGS (3)
  1. SKYCLARYS [Suspect]
     Active Substance: OMAVELOXOLONE
     Indication: Friedreich^s ataxia
     Dosage: 150 MILLIGRAM, ONCE DAILY
     Route: 048
     Dates: start: 20230716
  2. CLONAZEPAM [Concomitant]
     Active Substance: CLONAZEPAM
     Indication: Panic attack
     Dosage: UNK
  3. MIDOL [Concomitant]
     Active Substance: IBUPROFEN

REACTIONS (3)
  - Constipation [Recovered/Resolved]
  - Panic attack [Unknown]
  - Nausea [Recovered/Resolved]
